FAERS Safety Report 6887222-5 (Version None)
Quarter: 2010Q3

REPORT INFORMATION
  Report Type: 
  Country: None (occurrence: None)
  Receive Date: 20100730
  Receipt Date: 20100716
  Transmission Date: 20110219
  Serious: No
  Sender: FDA-Public Use
  Company Number: US-B.I. PHARMACEUTICALS,INC./RIDGEFIELD-2005-BP-14931BP

PATIENT
  Age: 86 Year
  Sex: Female

DRUGS (9)
  1. SPIRIVA [Suspect]
     Indication: CHRONIC OBSTRUCTIVE PULMONARY DISEASE
     Dosage: 18 MCG
     Dates: start: 20050801, end: 20090101
  2. SPIRIVA [Suspect]
     Dates: start: 20090101
  3. FLONASE [Concomitant]
     Indication: SINUS DISORDER
  4. ATACAND [Concomitant]
     Indication: HYPERTENSION
  5. PREVACID [Concomitant]
     Indication: GASTROOESOPHAGEAL REFLUX DISEASE
  6. ALLEGRA [Concomitant]
     Indication: HYPERSENSITIVITY
  7. MULTI-VITAMIN [Concomitant]
  8. CALCIUM GLUCONATE [Concomitant]
  9. CLONAZEPAM [Concomitant]
     Indication: RESTLESS LEGS SYNDROME

REACTIONS (12)
  - COUGH [None]
  - DYSPNOEA [None]
  - LIP SWELLING [None]
  - MACULAR DEGENERATION [None]
  - NASAL CONGESTION [None]
  - RESTLESS LEGS SYNDROME [None]
  - RHINORRHOEA [None]
  - SWOLLEN TONGUE [None]
  - TONGUE DISCOLOURATION [None]
  - VISION BLURRED [None]
  - VULVOVAGINAL BURNING SENSATION [None]
  - WHEEZING [None]
